FAERS Safety Report 4790315-X (Version None)
Quarter: 2005Q4

REPORT INFORMATION
  Report Type: 
  Country: None (occurrence: None)
  Receive Date: 20051005
  Receipt Date: 20050926
  Transmission Date: 20060501
  Serious: Yes (Life-Threatening, Hospitalization)
  Sender: FDA-Public Use
  Company Number: 217760

PATIENT
  Age: 48 Year
  Sex: Female
  Weight: 100.7 kg

DRUGS (11)
  1. BEVACIZUMAB (BEVACIZUMAB) PWDR + SOLVENT, INFUSION SOLN, 100MG [Suspect]
     Indication: OVARIAN CANCER
     Dosage: SEE IMAGE
     Dates: start: 20050302, end: 20050525
  2. BEVACIZUMAB (BEVACIZUMAB) PWDR + SOLVENT, INFUSION SOLN, 100MG [Suspect]
     Indication: OVARIAN CANCER
     Dosage: SEE IMAGE
     Dates: start: 20050601
  3. TAXOL [Concomitant]
  4. DOCUSATE SODIUM (DOCUSATE SODIUM) [Concomitant]
  5. SENNA (SENNA) [Concomitant]
  6. ESTROGENIC HORM SUBSTANCES TAB [Concomitant]
  7. WARFARIN SODIUM [Concomitant]
  8. LISINOPRIL [Concomitant]
  9. EPOETIN ALFA (EPOETIN ALFA) [Concomitant]
  10. PREDNISONE [Concomitant]
  11. DECADRON [Concomitant]

REACTIONS (25)
  - ABDOMINAL ADHESIONS [None]
  - ACTIVATED PARTIAL THROMBOPLASTIN TIME PROLONGED [None]
  - ASCITES [None]
  - ATELECTASIS [None]
  - ATRIAL FIBRILLATION [None]
  - BLOOD CREATININE INCREASED [None]
  - BLOOD PH DECREASED [None]
  - BLOOD SODIUM DECREASED [None]
  - COLLAPSE OF LUNG [None]
  - EJECTION FRACTION DECREASED [None]
  - ELECTROCARDIOGRAM T WAVE ABNORMAL [None]
  - GASTROINTESTINAL PERFORATION [None]
  - HAEMATOCRIT DECREASED [None]
  - HAEMOGLOBIN DECREASED [None]
  - HYPOTENSION [None]
  - NEUTROPENIA [None]
  - PERITONEAL DISORDER [None]
  - PLEURAL EFFUSION [None]
  - PULMONARY HYPERTENSION [None]
  - PULMONARY OEDEMA [None]
  - PYREXIA [None]
  - SEPSIS [None]
  - SINUS TACHYCARDIA [None]
  - VENTRICULAR DYSFUNCTION [None]
  - WHITE BLOOD CELL COUNT DECREASED [None]
